FAERS Safety Report 9113844 (Version 3)
Quarter: 2013Q1

REPORT INFORMATION
  Report Type: Spontaneous
  Country: JP (occurrence: JP)
  Receive Date: 20130208
  Receipt Date: 20130327
  Transmission Date: 20140127
  Serious: Yes (Hospitalization, Other)
  Sender: FDA-Public Use
  Company Number: JP-PFIZER INC-2013049672

PATIENT
  Age: 56 Year
  Sex: Female

DRUGS (5)
  1. LYRICA [Suspect]
     Indication: NECK PAIN
     Dosage: 75 MG, 2X/DAY
     Route: 048
     Dates: start: 20120123, end: 20120317
  2. LOXONIN TAPE [Concomitant]
     Dosage: 100 MG, UNK
     Dates: start: 20120123, end: 20120306
  3. MYSLEE [Concomitant]
     Dosage: 5 MG, UNK
     Dates: start: 20120206, end: 20120306
  4. LORFENAMIN [Concomitant]
     Dosage: 60 MG, 3X/DAY
     Dates: start: 20120220, end: 20120317
  5. MUCOSTA [Concomitant]
     Dosage: UNK
     Dates: start: 20120220, end: 20120317

REACTIONS (1)
  - Hepatitis acute [Recovered/Resolved]
